FAERS Safety Report 10362358 (Version 1)
Quarter: 2014Q3

REPORT INFORMATION
  Report Type: Spontaneous
  Country: FR (occurrence: None)
  Receive Date: 20140725
  Receipt Date: 20140725
  Transmission Date: 20150326
  Serious: Yes (Other)
  Sender: FDA-Public Use
  Company Number: 228316

PATIENT
  Age: 43 Year
  Sex: Female

DRUGS (1)
  1. DAIVOBET GEL (DAIVOBET) (GEL) [Suspect]
     Active Substance: BETAMETHASONE DIPROPIONATE\CALCIPOTRIENE
     Indication: PSORIASIS
     Dates: end: 2014

REACTIONS (2)
  - Psoriasis [None]
  - Scab [None]
